FAERS Safety Report 4359636-9 (Version None)
Quarter: 2004Q2

REPORT INFORMATION
  Report Type: 
  Country: None (occurrence: None)
  Receive Date: 20040517
  Receipt Date: 20040517
  Transmission Date: 20050107
  Serious: Yes (Death)
  Sender: FDA-Public Use
  Company Number: None

PATIENT
  Age: 42 Year
  Sex: Female

DRUGS (1)
  1. HEPARIN [Suspect]
     Indication: PULMONARY EMBOLISM
     Dosage: 40 UNITS/DRIP PROTO INTRAVENOUS
     Route: 042
     Dates: start: 20040509, end: 20040510

REACTIONS (1)
  - SUBARACHNOID HAEMORRHAGE [None]
